FAERS Safety Report 17663141 (Version 1)
Quarter: 2020Q2

REPORT INFORMATION
  Report Type: Spontaneous
  Country: US (occurrence: US)
  Receive Date: 20200414
  Receipt Date: 20200414
  Transmission Date: 20200713
  Serious: Yes (Death)
  Sender: FDA-Public Use
  Company Number: US-HAEMONETICS CORP-2082805

PATIENT
  Age: 60 Year
  Sex: Male
  Weight: 135 kg

DRUGS (1)
  1. HAEMONETICS ANTICOAGULANT SODIUM CITRATE [Suspect]
     Active Substance: TRISODIUM CITRATE DIHYDRATE
     Indication: ANTICOAGULANT THERAPY
     Route: 042
     Dates: start: 20191221, end: 20191221

REACTIONS (1)
  - Death [Fatal]

NARRATIVE: CASE EVENT DATE: 20191224
